FAERS Safety Report 11654402 (Version 1)
Quarter: 2015Q4

REPORT INFORMATION
  Report Type: Spontaneous
  Country: US (occurrence: US)
  Receive Date: 20151023
  Receipt Date: 20151023
  Transmission Date: 20160304
  Serious: Yes (Other)
  Sender: FDA-Public Use
  Company Number: US-ASTRAZENECA-2008BM13067

PATIENT
  Age: 64 Year
  Sex: Male
  Weight: 62.6 kg

DRUGS (14)
  1. BENICAR [Concomitant]
     Active Substance: OLMESARTAN MEDOXOMIL
     Indication: HYPERTENSION
     Route: 048
  2. CARISOPRODOL. [Concomitant]
     Active Substance: CARISOPRODOL
     Indication: ABDOMINAL DISCOMFORT
     Route: 048
  3. VICTOZA [Concomitant]
     Active Substance: LIRAGLUTIDE
     Indication: TYPE 2 DIABETES MELLITUS
     Route: 058
  4. GLIPIZIDE. [Concomitant]
     Active Substance: GLIPIZIDE
     Indication: TYPE 2 DIABETES MELLITUS
     Route: 048
  5. METFORMIN [Concomitant]
     Active Substance: METFORMIN HYDROCHLORIDE
     Indication: TYPE 2 DIABETES MELLITUS
     Route: 048
  6. POLYETHYLENE GLYCOL [Concomitant]
     Active Substance: POLYETHYLENE GLYCOLS
     Indication: CONSTIPATION
     Route: 048
  7. BYETTA [Suspect]
     Active Substance: EXENATIDE
     Route: 058
     Dates: start: 20080912
  8. PIOGLITAZONE. [Concomitant]
     Active Substance: PIOGLITAZONE
     Indication: TYPE 2 DIABETES MELLITUS
     Route: 048
  9. HYDROCODONE BITARTRATE AND ACETAMINOPHEN [Concomitant]
     Active Substance: ACETAMINOPHEN\HYDROCODONE BITARTRATE
     Indication: THERAPEUTIC SKIN CARE TOPICAL
     Route: 048
  10. LOVASTATIN. [Concomitant]
     Active Substance: LOVASTATIN
     Indication: BLOOD CHOLESTEROL INCREASED
  11. METRONIDAZOLE. [Concomitant]
     Active Substance: METRONIDAZOLE
     Indication: THERAPEUTIC SKIN CARE TOPICAL
     Route: 048
  12. NEXIUM [Suspect]
     Active Substance: ESOMEPRAZOLE MAGNESIUM
     Indication: GASTROOESOPHAGEAL REFLUX DISEASE
     Route: 048
     Dates: start: 201010
  13. GABAPENTIN. [Concomitant]
     Active Substance: GABAPENTIN
     Indication: NERVE INJURY
     Route: 048
  14. FLUTICASONE PROPIONATE. [Concomitant]
     Active Substance: FLUTICASONE PROPIONATE
     Indication: ABDOMINAL DISCOMFORT
     Route: 048

REACTIONS (1)
  - Intervertebral disc protrusion [Not Recovered/Not Resolved]

NARRATIVE: CASE EVENT DATE: 201310
